FAERS Safety Report 25528043 (Version 1)
Quarter: 2025Q3

REPORT INFORMATION
  Report Type: Spontaneous
  Country: US (occurrence: US)
  Receive Date: 20250708
  Receipt Date: 20250708
  Transmission Date: 20251021
  Serious: Yes (Hospitalization, Other)
  Sender: SANOFI AVENTIS
  Company Number: US-SANOFI-02577585

PATIENT
  Age: 65 Year
  Sex: Male

DRUGS (1)
  1. TOUJEO [Suspect]
     Active Substance: INSULIN GLARGINE
     Indication: Diabetes mellitus
     Dosage: 20 IU, QD
     Dates: start: 2023

REACTIONS (7)
  - Renal cancer [Unknown]
  - Renal impairment [Unknown]
  - Blood glucose increased [Unknown]
  - Device issue [Unknown]
  - Spinal pain [Unknown]
  - Pain in extremity [Unknown]
  - Gait disturbance [Unknown]
